FAERS Safety Report 25032943 (Version 3)
Quarter: 2025Q2

REPORT INFORMATION
  Report Type: Report from Study
  Country: GB (occurrence: GB)
  Receive Date: 20250303
  Receipt Date: 20250401
  Transmission Date: 20250716
  Serious: Yes (Congenital Anomaly, Other)
  Sender: MYLAN
  Company Number: GB-MYLANLABS-2025M1017057

PATIENT
  Sex: Female
  Weight: 1.81 kg

DRUGS (3)
  1. EMTRICITABINE\TENOFOVIR DISOPROXIL [Suspect]
     Active Substance: EMTRICITABINE\TENOFOVIR DISOPROXIL
     Indication: HIV infection
     Dosage: 1 DOSAGE FORM, QD (TAB/CAPS)
     Dates: start: 20240708
  2. DOLUTEGRAVIR\LAMIVUDINE\TENOFOVIR DISOPROXIL FUMARATE [Suspect]
     Active Substance: DOLUTEGRAVIR\LAMIVUDINE\TENOFOVIR DISOPROXIL FUMARATE
     Indication: HIV infection
     Dosage: 1 DOSAGE FORM, QD (TAB/CAPS)
     Dates: end: 20240708
  3. DOLUTEGRAVIR [Suspect]
     Active Substance: DOLUTEGRAVIR
     Indication: HIV infection
     Dosage: 50 MILLIGRAM, QD
     Dates: start: 20240708

REACTIONS (4)
  - Ventricular septal defect [Unknown]
  - Dysmorphism [Unknown]
  - Echocardiogram abnormal [Unknown]
  - Foetal exposure during pregnancy [Recovered/Resolved]
